FAERS Safety Report 23344983 (Version 1)
Quarter: 2023Q4

REPORT INFORMATION
  Report Type: Spontaneous
  Country: SE (occurrence: SE)
  Receive Date: 20231228
  Receipt Date: 20231228
  Transmission Date: 20240110
  Serious: Yes (Other)
  Sender: FDA-Public Use
  Company Number: SE-BAYER-2023A184673

PATIENT
  Age: 79 Year
  Sex: Male

DRUGS (2)
  1. EYLEA [Suspect]
     Active Substance: AFLIBERCEPT
     Indication: Neovascular age-related macular degeneration
     Dosage: 0.05 ML,65 WAS GIVEN IN THE RIGHT EYE; ONCE; STRENGTH: 40 MG/ML
     Dates: start: 20231212, end: 20231212
  2. EYLEA [Suspect]
     Active Substance: AFLIBERCEPT
     Dosage: 0.05 ML; 17 IN THE LEFT EYE; STRENGTH: 40 MG/ML

REACTIONS (4)
  - Intra-ocular injection complication [Unknown]
  - Anterior chamber inflammation [Unknown]
  - Vitreous floaters [Unknown]
  - Vitritis [Unknown]

NARRATIVE: CASE EVENT DATE: 20231219
